FAERS Safety Report 14945264 (Version 1)
Quarter: 2018Q2

REPORT INFORMATION
  Report Type: Spontaneous
  Country: US (occurrence: US)
  Receive Date: 20180529
  Receipt Date: 20180529
  Transmission Date: 20180711
  Serious: No
  Sender: FDA-Public Use
  Company Number: US-BIODELIVERY SCIENCES INTERNATIONAL-2017BDSI0171

PATIENT
  Sex: Female

DRUGS (2)
  1. BUPRENORPHINE. [Suspect]
     Active Substance: BUPRENORPHINE
     Indication: PAIN
     Route: 002
     Dates: start: 201708
  2. ACETYLSALICYLIC ACID [Concomitant]
     Active Substance: ASPIRIN
     Indication: BREAKTHROUGH PAIN

REACTIONS (5)
  - Fatigue [Recovered/Resolved]
  - Breakthrough pain [Recovering/Resolving]
  - Somnolence [Unknown]
  - Drug administration error [Unknown]
  - Product packaging issue [Unknown]

NARRATIVE: CASE EVENT DATE: 201708
